FAERS Safety Report 16953589 (Version 3)
Quarter: 2019Q4

REPORT INFORMATION
  Report Type: Report from Study
  Country: ES (occurrence: ES)
  Receive Date: 20191023
  Receipt Date: 20191230
  Transmission Date: 20200122
  Serious: Yes (Hospitalization, Other)
  Sender: FDA-Public Use
  Company Number: ES-CELGENEUS-ESP-20190808483

PATIENT
  Age: 73 Year
  Sex: Female

DRUGS (7)
  1. ABRAXANE [Suspect]
     Active Substance: PACLITAXEL
     Indication: ADENOCARCINOMA PANCREAS
     Route: 041
     Dates: start: 20190409, end: 20190814
  2. GEMCITABINE. [Suspect]
     Active Substance: GEMCITABINE
     Indication: ADENOCARCINOMA PANCREAS
     Route: 041
     Dates: start: 20190409, end: 20190814
  3. ENOXAPARIN [Concomitant]
     Active Substance: ENOXAPARIN
     Indication: FEBRILE NEUTROPENIA
     Dosage: 20 MILLIGRAM
     Route: 058
     Dates: start: 20190821, end: 20190912
  4. OMEPRAZOLE. [Concomitant]
     Active Substance: OMEPRAZOLE
     Indication: PROPHYLAXIS
     Dosage: DOSE NOT PROVIDED
     Route: 048
  5. ENOXAPARIN [Concomitant]
     Active Substance: ENOXAPARIN
     Indication: PROPHYLAXIS
     Dosage: DOSE NOT PROVIDED
     Route: 058
  6. LORAZEPAM. [Concomitant]
     Active Substance: LORAZEPAM
     Indication: PRODUCT USED FOR UNKNOWN INDICATION
     Dosage: DOSE NOT PROVIDED
     Route: 048
  7. DEXKETOPROFENO [Concomitant]
     Active Substance: DEXKETOPROFEN
     Indication: CANCER PAIN
     Dosage: DOSE NOT PROVIDED
     Route: 048

REACTIONS (2)
  - General physical health deterioration [Unknown]
  - Febrile neutropenia [Recovered/Resolved]

NARRATIVE: CASE EVENT DATE: 20190820
